FAERS Safety Report 8811064 (Version 1)
Quarter: 2012Q4

REPORT INFORMATION
  Report Type: 
  Country: CA (occurrence: CA)
  Receive Date: 20120927
  Receipt Date: 20120927
  Transmission Date: 20130627
  Serious: Yes (Other)
  Sender: FDA-Public Use
  Company Number: PHHY2009CA47653

PATIENT
  Sex: Female

DRUGS (3)
  1. ACLASTA [Suspect]
     Indication: OSTEOPOROSIS
     Route: 042
     Dates: start: 20081114
  2. ACLASTA [Suspect]
     Route: 042
     Dates: start: 20100914
  3. ACLASTA [Suspect]
     Route: 042
     Dates: start: 20111118

REACTIONS (5)
  - Fall [Unknown]
  - Loss of consciousness [Unknown]
  - Breast pain [Unknown]
  - Pain in extremity [Unknown]
  - Pain [Unknown]
